FAERS Safety Report 11130040 (Version 1)
Quarter: 2015Q2

REPORT INFORMATION
  Report Type: Report from Study
  Country: US (occurrence: US)
  Receive Date: 20150521
  Receipt Date: 20150521
  Transmission Date: 20150821
  Serious: Yes (Hospitalization)
  Sender: FDA-Public Use
  Company Number: PHHO2015US008564

PATIENT
  Age: 63 Year
  Sex: Male
  Weight: 57.4 kg

DRUGS (4)
  1. TACROLIMUS. [Suspect]
     Active Substance: TACROLIMUS
     Indication: LIVER TRANSPLANT
     Dosage: 3 MG, BID
     Route: 048
  2. ERL 080A [Suspect]
     Active Substance: CYCLOSPORINE
     Indication: LIVER TRANSPLANT
     Dosage: 360 MG, BID
     Route: 048
     Dates: start: 201302
  3. SIMULECT [Suspect]
     Active Substance: BASILIXIMAB
     Indication: LIVER TRANSPLANT
     Dosage: 40 MG, UNK
     Route: 042
     Dates: start: 20130507
  4. SIMULECT [Suspect]
     Active Substance: BASILIXIMAB
     Dosage: 20 MG, UNK
     Route: 042
     Dates: start: 20130511

REACTIONS (1)
  - Ascites [Recovered/Resolved]

NARRATIVE: CASE EVENT DATE: 20130913
